FAERS Safety Report 14967938 (Version 1)
Quarter: 2018Q2

REPORT INFORMATION
  Report Type: Spontaneous
  Country: US (occurrence: US)
  Receive Date: 20180604
  Receipt Date: 20180604
  Transmission Date: 20180711
  Serious: No
  Sender: FDA-Public Use
  Company Number: US-PFIZER INC-2018226884

PATIENT
  Age: 42 Year
  Sex: Male

DRUGS (1)
  1. XELJANZ [Suspect]
     Active Substance: TOFACITINIB CITRATE
     Dosage: UNK

REACTIONS (6)
  - Tremor [Unknown]
  - Blood pressure increased [Unknown]
  - Insomnia [Unknown]
  - Feeling abnormal [Unknown]
  - Headache [Unknown]
  - Restlessness [Unknown]

NARRATIVE: CASE EVENT DATE: 201805
